FAERS Safety Report 8203820-0 (Version None)
Quarter: 2012Q1

REPORT INFORMATION
  Report Type: 
  Country: None (occurrence: None)
  Receive Date: 20120308
  Receipt Date: 20120227
  Transmission Date: 20120608
  Serious: Yes (Hospitalization)
  Sender: FDA-Public Use
  Company Number: DSA_55307_2012

PATIENT
  Age: 55 Year
  Sex: Male

DRUGS (1)
  1. DILTIAZEM HCL [Suspect]
     Indication: PRODUCT USED FOR UNKNOWN INDICATION
     Dosage: 6000 MG 1X, NOT THE PRESCRIBED AMOUNT ORAL
     Route: 048
     Dates: start: 20120126, end: 20120126

REACTIONS (5)
  - SUICIDE ATTEMPT [None]
  - RENAL FAILURE ACUTE [None]
  - VOMITING [None]
  - OVERDOSE [None]
  - DIZZINESS [None]
